FAERS Safety Report 21621247 (Version 1)
Quarter: 2022Q4

REPORT INFORMATION
  Report Type: Spontaneous
  Country: US (occurrence: US)
  Receive Date: 20221121
  Receipt Date: 20221121
  Transmission Date: 20230112
  Serious: Yes (Hospitalization)
  Sender: FDA-Public Use
  Company Number: US-LUPIN PHARMACEUTICALS INC.-2022-13584

PATIENT
  Age: 65 Year
  Sex: Female

DRUGS (18)
  1. BUDESONIDE [Suspect]
     Active Substance: BUDESONIDE
     Indication: Subcutaneous emphysema
     Dosage: UNK
     Route: 065
  2. BUDESONIDE [Suspect]
     Active Substance: BUDESONIDE
     Indication: Pneumomediastinum
  3. BUDESONIDE [Suspect]
     Active Substance: BUDESONIDE
     Indication: Pneumothorax
  4. LEVALBUTEROL [Suspect]
     Active Substance: LEVALBUTEROL
     Indication: Subcutaneous emphysema
     Dosage: UNK
     Route: 065
  5. LEVALBUTEROL [Suspect]
     Active Substance: LEVALBUTEROL
     Indication: Pneumomediastinum
  6. LEVALBUTEROL [Suspect]
     Active Substance: LEVALBUTEROL
     Indication: Pneumothorax
  7. IPRATROPIUM [Suspect]
     Active Substance: IPRATROPIUM
     Indication: Subcutaneous emphysema
     Dosage: UNK
     Route: 065
  8. IPRATROPIUM [Suspect]
     Active Substance: IPRATROPIUM
     Indication: Pneumomediastinum
  9. IPRATROPIUM [Suspect]
     Active Substance: IPRATROPIUM
     Indication: Pneumothorax
  10. TERBUTALINE [Suspect]
     Active Substance: TERBUTALINE
     Indication: Subcutaneous emphysema
     Dosage: UNK
     Route: 065
  11. TERBUTALINE [Suspect]
     Active Substance: TERBUTALINE
     Indication: Pneumomediastinum
  12. TERBUTALINE [Suspect]
     Active Substance: TERBUTALINE
     Indication: Pneumothorax
  13. THEOPHYLLINE [Suspect]
     Active Substance: THEOPHYLLINE
     Indication: Subcutaneous emphysema
     Dosage: UNK
     Route: 065
  14. THEOPHYLLINE [Suspect]
     Active Substance: THEOPHYLLINE
     Indication: Pneumomediastinum
  15. THEOPHYLLINE [Suspect]
     Active Substance: THEOPHYLLINE
     Indication: Pneumothorax
  16. MAGNESIUM [Suspect]
     Active Substance: MAGNESIUM
     Indication: Subcutaneous emphysema
     Dosage: UNK
     Route: 065
  17. MAGNESIUM [Suspect]
     Active Substance: MAGNESIUM
     Indication: Pneumomediastinum
  18. MAGNESIUM [Suspect]
     Active Substance: MAGNESIUM
     Indication: Pneumothorax

REACTIONS (2)
  - Drug ineffective for unapproved indication [Unknown]
  - Off label use [Unknown]
